FAERS Safety Report 25602877 (Version 1)
Quarter: 2025Q3

REPORT INFORMATION
  Report Type: Report from Study
  Country: DO (occurrence: DO)
  Receive Date: 20250724
  Receipt Date: 20250724
  Transmission Date: 20251021
  Serious: Yes (Death, Disabling, Other)
  Sender: NOVARTIS
  Company Number: DO-002147023-NVSC2024DO245616

PATIENT
  Sex: Female

DRUGS (3)
  1. KISQALI [Suspect]
     Active Substance: RIBOCICLIB SUCCINATE
     Indication: Breast cancer metastatic
     Dosage: 1 MG, QD
     Route: 048
     Dates: start: 202312, end: 202412
  2. KISQALI [Suspect]
     Active Substance: RIBOCICLIB SUCCINATE
     Route: 048
     Dates: start: 2023, end: 20250226
  3. KISQALI [Suspect]
     Active Substance: RIBOCICLIB SUCCINATE
     Dosage: 200 MG, QD
     Route: 048
     Dates: start: 20231221

REACTIONS (13)
  - Cerebrovascular accident [Fatal]
  - Metastases to bone [Not Recovered/Not Resolved]
  - Concomitant disease progression [Not Recovered/Not Resolved]
  - Lymphadenopathy [Unknown]
  - Drug ineffective [Not Recovered/Not Resolved]
  - Seizure [Not Recovered/Not Resolved]
  - Hemiplegia [Not Recovered/Not Resolved]
  - Movement disorder [Not Recovered/Not Resolved]
  - Gait inability [Not Recovered/Not Resolved]
  - Brain neoplasm [Not Recovered/Not Resolved]
  - Fibroma [Not Recovered/Not Resolved]
  - Headache [Not Recovered/Not Resolved]
  - Neck mass [Not Recovered/Not Resolved]

NARRATIVE: CASE EVENT DATE: 20240101
